FAERS Safety Report 6895426-0 (Version None)
Quarter: 2010Q3

REPORT INFORMATION
  Report Type: 
  Country: None (occurrence: None)
  Receive Date: 20100730
  Receipt Date: 20100730
  Transmission Date: 20110219
  Serious: Yes (Other)
  Sender: FDA-Public Use
  Company Number: None

PATIENT
  Age: 77 Year
  Sex: Female
  Weight: 70 kg

DRUGS (15)
  1. CARAFATE [Suspect]
     Indication: PROPHYLAXIS
     Dosage: CARAFATE 1 GRAM QID PO
     Route: 048
     Dates: start: 20100101, end: 20100223
  2. CARAFATE [Suspect]
     Indication: ULCER
     Dosage: CARAFATE 1 GRAM QID PO
     Route: 048
     Dates: start: 20100101, end: 20100223
  3. ASPIRIN [Concomitant]
  4. SYNTHROID [Concomitant]
  5. PLAVIX [Concomitant]
  6. PEPCID [Concomitant]
  7. METOPROLOL [Concomitant]
  8. RANEXA [Concomitant]
  9. PHOSLO [Concomitant]
  10. RENAGEL [Concomitant]
  11. SENSIPAR [Concomitant]
  12. SALINE [Concomitant]
  13. ALLEGRA [Concomitant]
  14. PRAVACHOL [Concomitant]
  15. ACETAMINOPHEN [Concomitant]

REACTIONS (6)
  - ASTHENIA [None]
  - CONFUSIONAL STATE [None]
  - FALL [None]
  - HAEMODIALYSIS [None]
  - MENTAL STATUS CHANGES [None]
  - URINARY TRACT INFECTION [None]
